FAERS Safety Report 24240521 (Version 1)
Quarter: 2024Q3

REPORT INFORMATION
  Report Type: Report from Study
  Country: US (occurrence: US)
  Receive Date: 20240822
  Receipt Date: 20240822
  Transmission Date: 20241017
  Serious: Yes (Hospitalization)
  Sender: ABBVIE
  Company Number: US-ABBVIE-5889183

PATIENT
  Age: 77 Year
  Sex: Female

DRUGS (1)
  1. SKYRIZI [Suspect]
     Active Substance: RISANKIZUMAB-RZAA
     Indication: Psoriasis
     Dosage: LAST ADMIN DATE: AUG- 2024
     Route: 058
     Dates: start: 20240813

REACTIONS (2)
  - Cardiac therapeutic procedure [Recovering/Resolving]
  - Cardiac procedure complication [Recovering/Resolving]

NARRATIVE: CASE EVENT DATE: 20240801
